FAERS Safety Report 25838355 (Version 1)
Quarter: 2025Q3

REPORT INFORMATION
  Report Type: Spontaneous
  Country: IN (occurrence: IN)
  Receive Date: 20250923
  Receipt Date: 20250923
  Transmission Date: 20251020
  Serious: Yes (Other)
  Sender: B. BRAUN MEDICAL INC.
  Company Number: IN-B. Braun Medical Inc.-IN-BBM-202503632

PATIENT
  Age: 31 Year
  Sex: Female

DRUGS (3)
  1. BUPIVACAINE HYDROCHLORIDE [Suspect]
     Active Substance: BUPIVACAINE HYDROCHLORIDE
     Indication: Anaesthesia
  2. BUPRENORPHINE HYDROCHLORIDE [Suspect]
     Active Substance: BUPRENORPHINE HYDROCHLORIDE
  3. EPHEDRINE [Concomitant]
     Active Substance: EPHEDRINE
     Indication: Prophylaxis

REACTIONS (2)
  - Parotitis [Recovering/Resolving]
  - Maternal exposure timing unspecified [Unknown]
